FAERS Safety Report 5893787-2 (Version None)
Quarter: 2008Q3

REPORT INFORMATION
  Report Type: 
  Country: None (occurrence: None)
  Receive Date: 20080923
  Receipt Date: 20080911
  Transmission Date: 20090109
  Serious: Yes (Hospitalization)
  Sender: FDA-Public Use
  Company Number: MX-ELI_LILLY_AND_COMPANY-MX200809003042

PATIENT
  Sex: Male

DRUGS (5)
  1. HUMALOG [Suspect]
     Indication: TYPE 2 DIABETES MELLITUS
     Dosage: 20 IU, EACH MORNING
     Route: 058
     Dates: start: 20080101
  2. HUMALOG [Suspect]
     Dosage: UNK, EACH EVENING
     Route: 058
     Dates: start: 20080101
  3. METFORMIN HCL [Concomitant]
     Dosage: UNK UNK, 2/D
  4. LANTUS [Concomitant]
     Dosage: UNK, UNKNOWN
     Route: 065
  5. HUMULIN N [Concomitant]
     Dosage: UNK, UNKNOWN
     Dates: start: 20080828

REACTIONS (5)
  - ABDOMINAL PAIN UPPER [None]
  - COMA [None]
  - DISORIENTATION [None]
  - HYPOGLYCAEMIA [None]
  - TREMOR [None]
